FAERS Safety Report 12975796 (Version 1)
Quarter: 2016Q4

REPORT INFORMATION
  Report Type: Spontaneous
  Country: US (occurrence: US)
  Receive Date: 20161125
  Receipt Date: 20161125
  Transmission Date: 20170207
  Serious: Yes (Other)
  Sender: FDA-Public Use
  Company Number: US-BAUSCH-BL-2016-028760

PATIENT
  Age: 3 Month
  Sex: Male

DRUGS (1)
  1. FLUOROURACIL. [Suspect]
     Active Substance: FLUOROURACIL
     Indication: PRODUCT USED FOR UNKNOWN INDICATION
     Route: 057

REACTIONS (3)
  - Corneal oedema [Recovered/Resolved]
  - Corneal opacity [Recovered/Resolved]
  - Toxicity to various agents [Recovered/Resolved]
